FAERS Safety Report 9448177 (Version 1)
Quarter: 2013Q3

REPORT INFORMATION
  Report Type: Spontaneous
  Country: CH (occurrence: None)
  Receive Date: 20130806
  Receipt Date: 20130806
  Transmission Date: 20140515
  Serious: Yes (Hospitalization)
  Sender: FDA-Public Use
  Company Number: 2013P1013959

PATIENT
  Sex: Male

DRUGS (2)
  1. AMOXICILLIN CLAVULAMATE [Suspect]
     Indication: UPPER RESPIRATORY TRACT INFECTION
  2. ACENOCOUMAROL [Concomitant]
     Route: 048

REACTIONS (5)
  - Drug interaction [None]
  - Upper gastrointestinal haemorrhage [None]
  - Anaemia [None]
  - Myocardial infarction [None]
  - Cardiac failure chronic [None]
